FAERS Safety Report 4791242-4 (Version None)
Quarter: 2005Q4

REPORT INFORMATION
  Report Type: 
  Country: None (occurrence: None)
  Receive Date: 20051007
  Receipt Date: 20050718
  Transmission Date: 20060501
  Serious: No
  Sender: FDA-Public Use
  Company Number: US-BRISTOL-MYERS SQUIBB COMPANY-13041868

PATIENT
  Age: 73 Year
  Sex: Male
  Weight: 84 kg

DRUGS (4)
  1. METAGLIP [Suspect]
     Indication: DIABETES MELLITUS NON-INSULIN-DEPENDENT
     Dosage: DOSAGE FORM = GLIPIZIDE 5 MG/ METFORMIN 500 MG
     Dates: start: 20050711
  2. ASCORBIC ACID [Concomitant]
  3. MULTI-VITAMIN [Concomitant]
  4. ASPIRIN [Concomitant]

REACTIONS (1)
  - HYPERTENSION [None]
